FAERS Safety Report 8090256 (Version 2)
Quarter: 2013Q2

REPORT INFORMATION
  Report Type: Spontaneous
  Country: SE (occurrence: SE)
  Receive Date: 20110815
  Receipt Date: 20130523
  Transmission Date: 20140414
  Serious: Yes (Other)
  Sender: FDA-Public Use
  Company Number: SE-ASTRAZENECA-2011SE47050

PATIENT
  Age: 14971 Day
  Sex: Female

DRUGS (1)
  1. MARCAIN ADRENALIN [Suspect]
     Indication: PAIN
     Dates: end: 20110524

REACTIONS (1)
  - Polyneuropathy [Unknown]
